FAERS Safety Report 8962341 (Version 1)
Quarter: 2012Q4

REPORT INFORMATION
  Report Type: Spontaneous
  Country: US (occurrence: None)
  Receive Date: 20121211
  Receipt Date: 20121211
  Transmission Date: 20130627
  Serious: Yes (Other)
  Sender: FDA-Public Use
  Company Number: None

PATIENT
  Age: 68 Year
  Sex: Female
  Weight: 71.67 kg

DRUGS (1)
  1. ATORVASTATIN [Suspect]
     Indication: CHOLESTEROL HIGH
     Dosage: 1/2 40 mg tablet daily
     Dates: start: 201201

REACTIONS (4)
  - Myalgia [None]
  - Muscle spasms [None]
  - Arthralgia [None]
  - Myalgia [None]
